FAERS Safety Report 9225727 (Version 1)
Quarter: 2013Q2

REPORT INFORMATION
  Report Type: Spontaneous
  Country: FR (occurrence: FR)
  Receive Date: 20130411
  Receipt Date: 20130411
  Transmission Date: 20140414
  Serious: Yes (Hospitalization)
  Sender: FDA-Public Use
  Company Number: FR-GLAXOSMITHKLINE-B0879994A

PATIENT
  Age: 88 Year
  Sex: Female

DRUGS (7)
  1. ARIXTRA [Suspect]
     Indication: PRODUCT USED FOR UNKNOWN INDICATION
     Route: 065
     Dates: end: 20121218
  2. PREVISCAN [Suspect]
     Indication: PRODUCT USED FOR UNKNOWN INDICATION
     Route: 048
     Dates: end: 20121218
  3. SERTRALINE [Concomitant]
     Dosage: 25MG IN THE MORNING
  4. NOVONORM [Concomitant]
  5. BURINEX [Concomitant]
  6. SIMVASTATINE [Concomitant]
  7. OMEPRAZOLE [Concomitant]

REACTIONS (4)
  - Haematoma [Recovered/Resolved]
  - Renal failure [Recovered/Resolved]
  - Anaemia [Unknown]
  - Fall [None]
